FAERS Safety Report 9258575 (Version 1)
Quarter: 2013Q2

REPORT INFORMATION
  Report Type: Spontaneous
  Country: US (occurrence: US)
  Receive Date: 20130426
  Receipt Date: 20130426
  Transmission Date: 20140414
  Serious: Yes (Other)
  Sender: FDA-Public Use
  Company Number: US-BANPHARM-20131194

PATIENT
  Age: 89 Year
  Sex: Female
  Weight: 65.77 kg

DRUGS (4)
  1. ALEVE LIQUID GELS 220 MG [Suspect]
     Indication: ARTHRITIS
     Dosage: 1 DF, BID,
     Route: 048
     Dates: start: 20130212, end: 20130411
  2. NADOLOL [Concomitant]
  3. NISOLDIPINE [Concomitant]
  4. 81 MG ASPIRIN [Concomitant]

REACTIONS (3)
  - Fluid retention [Not Recovered/Not Resolved]
  - Weight increased [Unknown]
  - Incorrect drug administration duration [Recovered/Resolved]
